FAERS Safety Report 25811109 (Version 1)
Quarter: 2025Q3

REPORT INFORMATION
  Report Type: Report from Study
  Country: US (occurrence: US)
  Receive Date: 20250917
  Receipt Date: 20250917
  Transmission Date: 20251021
  Serious: Yes (Other)
  Sender: SUNOVION
  Company Number: US-SMPA-2025SPA011552

PATIENT
  Age: 51 Year
  Sex: Female

DRUGS (20)
  1. ORGOVYX [Suspect]
     Active Substance: RELUGOLIX
     Indication: Benign soft tissue neoplasm
     Route: 048
  2. ORGOVYX [Suspect]
     Active Substance: RELUGOLIX
     Indication: Benign connective tissue neoplasm
     Route: 048
  3. AZITHROMYCIN [Concomitant]
     Active Substance: AZITHROMYCIN
  4. BENICAR [Concomitant]
     Active Substance: OLMESARTAN MEDOXOMIL
  5. BUSPIRONE HCL [Concomitant]
     Active Substance: BUSPIRONE HYDROCHLORIDE
  6. ESCITALOPRAM OXALATE [Concomitant]
     Active Substance: ESCITALOPRAM OXALATE
  7. FLOVENT HFA [Concomitant]
     Active Substance: FLUTICASONE PROPIONATE
  8. Hydrocodone;Ibuprofen [Concomitant]
  9. MAGNESIUM OXIDE [Concomitant]
     Active Substance: MAGNESIUM OXIDE
  10. METFORMIN HYDROCHLORIDE [Concomitant]
     Active Substance: METFORMIN HYDROCHLORIDE
  11. METHOCARBAMOL [Concomitant]
     Active Substance: METHOCARBAMOL
  12. METHYLPREDNISOLONE [Concomitant]
     Active Substance: METHYLPREDNISOLONE
  13. MIRTAZAPINE [Concomitant]
     Active Substance: MIRTAZAPINE
  14. OMEPRAZOLE [Concomitant]
     Active Substance: OMEPRAZOLE
  15. PROAIR HFA [Concomitant]
     Active Substance: ALBUTEROL SULFATE
  16. ROSUVASTATIN CALCIUM [Concomitant]
     Active Substance: ROSUVASTATIN CALCIUM
  17. VITAMIN B2 [Concomitant]
     Active Substance: RIBOFLAVIN
  18. VALACYCLOVIR HYDROCHLORIDE [Concomitant]
     Active Substance: VALACYCLOVIR HYDROCHLORIDE
  19. WELLBUTRIN XL [Concomitant]
     Active Substance: BUPROPION HYDROCHLORIDE
  20. ZYRTEC [Concomitant]
     Active Substance: CETIRIZINE HYDROCHLORIDE

REACTIONS (2)
  - Surgery [Unknown]
  - Product use in unapproved indication [Unknown]
